FAERS Safety Report 24768148 (Version 1)
Quarter: 2024Q4

REPORT INFORMATION
  Report Type: Other
  Country: AU (occurrence: AU)
  Receive Date: 20241223
  Receipt Date: 20241223
  Transmission Date: 20250114
  Serious: Yes (Other)
  Sender: B BRAUN
  Company Number: AU-B.Braun Medical Inc.-2167680

PATIENT
  Age: 74 Year
  Sex: Female

DRUGS (1)
  1. CEFTAZIDIME [Suspect]
     Active Substance: CEFTAZIDIME
     Indication: Burkholderia pseudomallei infection

REACTIONS (3)
  - Agranulocytosis [Unknown]
  - Off label use [Unknown]
  - Drug hypersensitivity [Unknown]
